FAERS Safety Report 7762515-8 (Version None)
Quarter: 2011Q3

REPORT INFORMATION
  Report Type: 
  Country: None (occurrence: None)
  Receive Date: 20110825
  Receipt Date: 20110623
  Transmission Date: 20111222
  Serious: No
  Sender: FDA-Public Use
  Company Number: 330665

PATIENT
  Age: 46 Year
  Sex: Male

DRUGS (2)
  1. METFORMIN HCL [Concomitant]
  2. VICTOZA [Suspect]
     Indication: TYPE 2 DIABETES MELLITUS
     Dosage: 1.8 MG, QD, SUBCUTANEOUS
     Route: 058
     Dates: start: 20110601

REACTIONS (4)
  - PRURITUS GENERALISED [None]
  - ABDOMINAL DISTENSION [None]
  - VOMITING [None]
  - NAUSEA [None]
